FAERS Safety Report 11345824 (Version 1)
Quarter: 2015Q3

REPORT INFORMATION
  Report Type: Spontaneous
  Country: US (occurrence: US)
  Receive Date: 20150806
  Receipt Date: 20150806
  Transmission Date: 20151125
  Serious: No
  Sender: FDA-Public Use
  Company Number: US-BAYER-2015-390193

PATIENT
  Age: 72 Year
  Sex: Female
  Weight: 63.49 kg

DRUGS (2)
  1. ALKA-SELTZER PLUS COLD AND COUGH FORMULA [Suspect]
     Active Substance: ACETAMINOPHEN\CHLORPHENIRAMINE MALEATE\DEXTROMETHORPHAN HYDROBROMIDE\PHENYLEPHRINE HYDROCHLORIDE
     Dosage: 2 DF, AT 12:30 AND AT 16:30
     Route: 048
     Dates: start: 20150726, end: 20150726
  2. CLARITIN [Suspect]
     Active Substance: LORATADINE
     Dosage: UNK , QD
     Route: 048

REACTIONS (2)
  - Swollen tongue [Recovered/Resolved]
  - Therapeutic response unexpected [None]

NARRATIVE: CASE EVENT DATE: 20150726
